FAERS Safety Report 23637287 (Version 1)
Quarter: 2024Q1

REPORT INFORMATION
  Report Type: Spontaneous
  Country: CN (occurrence: CN)
  Receive Date: 20240315
  Receipt Date: 20240315
  Transmission Date: 20240410
  Serious: Yes (Hospitalization)
  Sender: FDA-Public Use
  Company Number: CN-009507513-2403CHN004293

PATIENT
  Age: 79 Year
  Sex: Male

DRUGS (8)
  1. KEYTRUDA [Suspect]
     Active Substance: PEMBROLIZUMAB
     Indication: Sarcomatosis
     Dosage: FIRST DOSE, 200 MILLIGRAM, Q3W
     Dates: start: 20230719, end: 20230719
  2. KEYTRUDA [Suspect]
     Active Substance: PEMBROLIZUMAB
     Indication: Squamous cell carcinoma of the oral cavity
     Dosage: SECOND DOSE, 200 MILLIGRAM, Q3W
     Dates: start: 20230817, end: 20230817
  3. KEYTRUDA [Suspect]
     Active Substance: PEMBROLIZUMAB
     Dosage: THIRD DOSE, 200 MILLIGRAM, Q3W
     Dates: start: 20230907, end: 20230907
  4. KEYTRUDA [Suspect]
     Active Substance: PEMBROLIZUMAB
     Dosage: FOURTH DOSE, 200 MILLIGRAM, Q3W
     Dates: start: 20230927, end: 20230927
  5. KEYTRUDA [Suspect]
     Active Substance: PEMBROLIZUMAB
     Dosage: FIFTH DOSE, 200 MILLIGRAM, Q3W
     Dates: start: 20231019, end: 20231019
  6. KEYTRUDA [Suspect]
     Active Substance: PEMBROLIZUMAB
     Dosage: SIXTH DOSE, 200 MILLIGRAM, Q3W
     Dates: start: 20231130, end: 20231130
  7. KEYTRUDA [Suspect]
     Active Substance: PEMBROLIZUMAB
     Dosage: SEVENTH DOSE, 200 MILLIGRAM, Q3W
     Dates: start: 20231221, end: 20231221
  8. ASPIRIN [Concomitant]
     Active Substance: ASPIRIN
     Dosage: FOR A LONG TIME; ENTERIC COATED TABLETS

REACTIONS (5)
  - Inappropriate schedule of product administration [Unknown]
  - Inappropriate schedule of product administration [Unknown]
  - Inappropriate schedule of product administration [Unknown]
  - Inappropriate schedule of product administration [Unknown]
  - Glossodynia [Unknown]

NARRATIVE: CASE EVENT DATE: 20230817
